FAERS Safety Report 10172565 (Version 5)
Quarter: 2015Q4

REPORT INFORMATION
  Report Type: Spontaneous
  Country: US (occurrence: US)
  Receive Date: 20140515
  Receipt Date: 20151230
  Transmission Date: 20160304
  Serious: Yes (Hospitalization, Other)
  Sender: FDA-Public Use
  Company Number: US-009507513-1405USA002409

PATIENT
  Sex: Female

DRUGS (5)
  1. ALENDRONATE SODIUM. [Suspect]
     Active Substance: ALENDRONATE SODIUM
     Indication: OSTEOPOROSIS
     Dosage: 70 MG, UNK
     Route: 048
     Dates: start: 20080422, end: 20090420
  2. FOSAMAX [Suspect]
     Active Substance: ALENDRONATE SODIUM
     Dosage: UNK
     Route: 048
     Dates: end: 20121012
  3. FOSAMAX [Suspect]
     Active Substance: ALENDRONATE SODIUM
     Dosage: 70 MG, UNK
     Route: 048
     Dates: start: 20010821, end: 20080422
  4. ALENDRONATE SODIUM. [Suspect]
     Active Substance: ALENDRONATE SODIUM
     Dosage: UNK
     Route: 048
     Dates: start: 200901, end: 201205
  5. FOSAMAX [Suspect]
     Active Substance: ALENDRONATE SODIUM
     Indication: OSTEOPOROSIS
     Dosage: 10 MG, UNK
     Route: 048
     Dates: start: 19961018, end: 200108

REACTIONS (23)
  - Colectomy [Unknown]
  - Oral surgery [Unknown]
  - Osteomyelitis [Unknown]
  - Dental implantation [Unknown]
  - Diabetes mellitus [Unknown]
  - Vitamin D deficiency [Unknown]
  - Arthropathy [Unknown]
  - Impaired healing [Unknown]
  - Femur fracture [Unknown]
  - Hypertension [Unknown]
  - Osteoporosis [Unknown]
  - Intramedullary rod insertion [Unknown]
  - Femur fracture [Unknown]
  - Colorectal cancer [Unknown]
  - Femur fracture [Unknown]
  - Insomnia [Not Recovered/Not Resolved]
  - Femur fracture [Unknown]
  - Depression [Not Recovered/Not Resolved]
  - Anxiety [Not Recovered/Not Resolved]
  - Ankle fracture [Unknown]
  - Lower limb fracture [Unknown]
  - Osteoarthritis [Unknown]
  - Stress fracture [Unknown]

NARRATIVE: CASE EVENT DATE: 2000
